FAERS Safety Report 13006254 (Version 1)
Quarter: 2016Q4

REPORT INFORMATION
  Report Type: Spontaneous
  Country: US (occurrence: US)
  Receive Date: 20161207
  Receipt Date: 20161207
  Transmission Date: 20170207
  Serious: No
  Sender: FDA-Public Use
  Company Number: US-WATSON-2016-07328

PATIENT
  Sex: Female

DRUGS (1)
  1. PROBENECID/COLCHICINE 500/0.5 (WATSON LABORATORIES) [Suspect]
     Active Substance: COLCHICINE\PROBENECID
     Indication: PRODUCT USED FOR UNKNOWN INDICATION
     Dosage: 1 DF, BID
     Route: 048

REACTIONS (2)
  - Alopecia [Not Recovered/Not Resolved]
  - Drug administration error [Unknown]
